FAERS Safety Report 23556795 (Version 10)
Quarter: 2024Q3

REPORT INFORMATION
  Report Type: Spontaneous
  Country: US (occurrence: US)
  Receive Date: 20240223
  Receipt Date: 20240906
  Transmission Date: 20241016
  Serious: Yes (Hospitalization, Other)
  Sender: RANBAXY
  Company Number: US-SUN PHARMACEUTICAL INDUSTRIES LTD-2024R1-430736

PATIENT
  Sex: Female
  Weight: 92.517 kg

DRUGS (10)
  1. EPOPROSTENOL [Suspect]
     Active Substance: EPOPROSTENOL
     Indication: Pulmonary arterial hypertension
     Dosage: UNK (6 NG PER KG PER MIN,CONTINUOUS)
     Route: 042
  2. EPOPROSTENOL [Suspect]
     Active Substance: EPOPROSTENOL
     Dosage: UNK (9 NG PER KG PER MIN,CONTINUOUS)
     Route: 042
     Dates: start: 20240129
  3. EPOPROSTENOL [Suspect]
     Active Substance: EPOPROSTENOL
     Dosage: UNK (10 NG PER KG PER MIN,CONTINUOUS)
     Route: 042
     Dates: start: 20240129
  4. EPOPROSTENOL [Suspect]
     Active Substance: EPOPROSTENOL
     Dosage: UNK (9 NG PER KG PER MIN,CONTINUOUS)
     Route: 042
     Dates: start: 20240129
  5. EPOPROSTENOL [Suspect]
     Active Substance: EPOPROSTENOL
     Dosage: UNK (13 NG PER KG PER MIN,CONTINUOUS)
     Route: 042
     Dates: start: 20240129
  6. EPOPROSTENOL [Suspect]
     Active Substance: EPOPROSTENOL
     Dosage: UNK 16.5 NG/KG/MIN
     Route: 042
     Dates: start: 20240129
  7. EPOPROSTENOL [Suspect]
     Active Substance: EPOPROSTENOL
     Dosage: UNK 16.5 NG/KG/MIN
     Route: 042
     Dates: start: 20240129
  8. ADEMPAS [Concomitant]
     Active Substance: RIOCIGUAT
     Indication: Product used for unknown indication
     Dosage: UNK
     Route: 065
  9. OPSUMIT [Concomitant]
     Active Substance: MACITENTAN
     Indication: Product used for unknown indication
     Dosage: UNK
     Route: 065
  10. WINREVAIR [Concomitant]
     Active Substance: SOTATERCEPT-CSRK
     Indication: Product used for unknown indication
     Route: 065

REACTIONS (38)
  - Infection [Unknown]
  - COVID-19 [Unknown]
  - Malaise [Unknown]
  - Asthenia [Unknown]
  - Lethargy [Unknown]
  - Pain in jaw [Unknown]
  - Flushing [Unknown]
  - Dizziness [Unknown]
  - Fatigue [Unknown]
  - Nausea [Unknown]
  - Joint swelling [Unknown]
  - Headache [Unknown]
  - Chills [Unknown]
  - Dyspnoea [Unknown]
  - Pain [Unknown]
  - Burning sensation [Unknown]
  - Application site pain [Unknown]
  - Application site erythema [Unknown]
  - Administration site pustule [Unknown]
  - Arthralgia [Unknown]
  - Rash [Unknown]
  - Drainage [Unknown]
  - Administration site pain [Unknown]
  - Haemorrhage [Unknown]
  - Dyspnoea [Unknown]
  - Diarrhoea [Unknown]
  - Wheezing [Unknown]
  - Rales [Unknown]
  - Back pain [Unknown]
  - Chest pain [Unknown]
  - Dyspepsia [Unknown]
  - Myalgia [Unknown]
  - Heart rate increased [Unknown]
  - Arthralgia [Unknown]
  - Amnesia [Unknown]
  - Feeling abnormal [Unknown]
  - Hypotension [Unknown]
  - Arthralgia [Unknown]
